FAERS Safety Report 7632889-7 (Version None)
Quarter: 2011Q3

REPORT INFORMATION
  Report Type: 
  Country: None (occurrence: None)
  Receive Date: 20110725
  Receipt Date: 20110713
  Transmission Date: 20111222
  Serious: Yes (Hospitalization, Other)
  Sender: FDA-Public Use
  Company Number: PHHY2011CA33369

PATIENT
  Sex: Male

DRUGS (1)
  1. SANDOSTATIN LAR [Suspect]
     Indication: ADENOMA BENIGN
     Dosage: 20 MG, QMO
     Route: 030
     Dates: start: 20080710

REACTIONS (7)
  - ATRIOVENTRICULAR BLOCK [None]
  - MYOCARDIAL INFARCTION [None]
  - HAEMORRHOIDAL HAEMORRHAGE [None]
  - HAEMOGLOBIN DECREASED [None]
  - CHEST PAIN [None]
  - HAEMORRHOIDS [None]
  - DYSPNOEA [None]
